FAERS Safety Report 23135404 (Version 1)
Quarter: 2023Q4

REPORT INFORMATION
  Report Type: Spontaneous
  Country: IT (occurrence: IT)
  Receive Date: 20231101
  Receipt Date: 20231101
  Transmission Date: 20240110
  Serious: Yes (Life-Threatening)
  Sender: FDA-Public Use
  Company Number: None

PATIENT
  Age: 90 Year
  Sex: Male

DRUGS (1)
  1. TRIAZOLAM [Suspect]
     Active Substance: TRIAZOLAM
     Dosage: UNK
     Route: 048
     Dates: start: 20230917, end: 20230917

REACTIONS (3)
  - Altered state of consciousness [Recovering/Resolving]
  - Gait disturbance [Recovering/Resolving]
  - Overdose [Recovered/Resolved]

NARRATIVE: CASE EVENT DATE: 20230917
